FAERS Safety Report 25459186 (Version 1)
Quarter: 2025Q2

REPORT INFORMATION
  Report Type: Spontaneous
  Country: AU (occurrence: AU)
  Receive Date: 20250620
  Receipt Date: 20250620
  Transmission Date: 20250717
  Serious: Yes (Other)
  Sender: SAMSUNG BIOEPIS
  Company Number: AU-SAMSUNG BIOEPIS-SB-2025-21132

PATIENT
  Age: 33 Year
  Sex: Female

DRUGS (1)
  1. HADLIMA [Suspect]
     Active Substance: ADALIMUMAB-BWWD
     Indication: Pustular psoriasis

REACTIONS (3)
  - Generalised pustular psoriasis [Unknown]
  - Maternal exposure during pregnancy [Unknown]
  - Off label use [Unknown]
